FAERS Safety Report 4876975-3 (Version None)
Quarter: 2005Q4

REPORT INFORMATION
  Report Type: 
  Country: None (occurrence: None)
  Receive Date: 20051206
  Receipt Date: 20050913
  Transmission Date: 20060501
  Serious: No
  Sender: FDA-Public Use
  Company Number: USA0509108444

PATIENT
  Sex: Male

DRUGS (1)
  1. CYMBALTA [Suspect]

REACTIONS (3)
  - HALLUCINATION, VISUAL [None]
  - PSYCHOTIC DISORDER [None]
  - SUICIDAL IDEATION [None]
